FAERS Safety Report 9037913 (Version 1)
Quarter: 2013Q1

REPORT INFORMATION
  Report Type: Report from Study
  Country: CA (occurrence: CA)
  Receive Date: 20130129
  Receipt Date: 20130129
  Transmission Date: 20140127
  Serious: Yes (Other)
  Sender: FDA-Public Use
  Company Number: CA-JNJFOC-20130108859

PATIENT
  Sex: Female
  Weight: 77 kg

DRUGS (3)
  1. REMICADE [Suspect]
     Indication: CROHN^S DISEASE
     Route: 042
     Dates: start: 2001
  2. ZOPLICONE [Concomitant]
     Route: 065
  3. ACCUTANE [Concomitant]
     Route: 065

REACTIONS (1)
  - Intestinal cyst [Unknown]
